FAERS Safety Report 4580868-9 (Version None)
Quarter: 2005Q1

REPORT INFORMATION
  Report Type: 
  Country: None (occurrence: None)
  Receive Date: 20050214
  Receipt Date: 20040616
  Transmission Date: 20050727
  Serious: No
  Sender: FDA-Public Use
  Company Number: US-GLAXOSMITHKLINE-A0514897A

PATIENT
  Age: 40 Year
  Sex: Female

DRUGS (5)
  1. LAMICTAL [Suspect]
     Indication: BIPOLAR DISORDER
     Dosage: 100MG PER DAY
     Route: 048
     Dates: start: 20030101
  2. ZYPREXA [Concomitant]
  3. LITHIUM [Concomitant]
  4. SYNTHROID [Concomitant]
  5. ADDERALL 10 [Concomitant]

REACTIONS (1)
  - ALOPECIA [None]
